FAERS Safety Report 12808620 (Version 3)
Quarter: 2017Q2

REPORT INFORMATION
  Report Type: Report from Study
  Country: US (occurrence: US)
  Receive Date: 20161004
  Receipt Date: 20170421
  Transmission Date: 20170830
  Serious: Yes (Death, Other)
  Sender: FDA-Public Use
  Company Number: PHEH2016US024851

PATIENT
  Sex: Male

DRUGS (1)
  1. EXJADE [Suspect]
     Active Substance: DEFERASIROX
     Indication: MYELODYSPLASTIC SYNDROME
     Dosage: UNK
     Route: 065
     Dates: start: 20160708, end: 20160819

REACTIONS (5)
  - General physical health deterioration [Unknown]
  - Refractory cytopenia with multilineage dysplasia [Unknown]
  - Death [Fatal]
  - Confusional state [Unknown]
  - Loss of personal independence in daily activities [Unknown]
